FAERS Safety Report 11163374 (Version 2)
Quarter: 2016Q2

REPORT INFORMATION
  Report Type: Spontaneous
  Country: US (occurrence: US)
  Receive Date: 20150604
  Receipt Date: 20160524
  Transmission Date: 20160815
  Serious: Yes (Other)
  Sender: FDA-Public Use
  Company Number: US-SA-2015SA033105

PATIENT
  Age: 80 Year
  Sex: Female
  Weight: 73.94 kg

DRUGS (9)
  1. NORVASC [Concomitant]
     Active Substance: AMLODIPINE BESYLATE
     Indication: BLOOD PRESSURE MEASUREMENT
  2. SOLOSTAR [Concomitant]
     Active Substance: DEVICE
  3. LANTUS SOLOSTAR [Suspect]
     Active Substance: INSULIN GLARGINE
     Indication: DIABETES MELLITUS
     Dosage: TREATMENT ONSET DATE: AT LEAST 7 -9 YEARS.
     Route: 065
  4. SOLOSTAR [Concomitant]
     Active Substance: DEVICE
     Dates: end: 20150315
  5. SOTALOL. [Concomitant]
     Active Substance: SOTALOL
     Indication: CARDIAC DISORDER
  6. BABY ASPIRIN [Concomitant]
     Active Substance: ASPIRIN
  7. LANTUS SOLOSTAR [Suspect]
     Active Substance: INSULIN GLARGINE
     Indication: DIABETES MELLITUS
     Dosage: TREATMENT ONSET DATE: AT LEAST 7 -9 YEARS. DOSE:15 UNIT(S)
     Route: 065
     Dates: end: 20150315
  8. LISINOPRIL. [Concomitant]
     Active Substance: LISINOPRIL
     Indication: BLOOD PRESSURE MEASUREMENT
  9. SYNTHROID [Concomitant]
     Active Substance: LEVOTHYROXINE SODIUM
     Indication: THYROID DISORDER

REACTIONS (5)
  - Blood glucose increased [Recovered/Resolved]
  - Drug ineffective [Unknown]
  - Cataract [Unknown]
  - Blood glucose abnormal [Unknown]
  - Drug administration error [Unknown]

NARRATIVE: CASE EVENT DATE: 20150129
